FAERS Safety Report 10170482 (Version 1)
Quarter: 2014Q2

REPORT INFORMATION
  Report Type: Spontaneous
  Country: NL (occurrence: NL)
  Receive Date: 20140513
  Receipt Date: 20140513
  Transmission Date: 20141212
  Serious: Yes (Hospitalization)
  Sender: FDA-Public Use
  Company Number: PHHY2014NL056793

PATIENT
  Age: 70 Year
  Sex: Male

DRUGS (11)
  1. CARBAMAZEPINE [Suspect]
     Dosage: 1 DF, TID
  2. AUGMENTIN [Interacting]
     Indication: INFLAMMATION
     Dosage: 1 DF (500/125 MG), TID
     Dates: start: 20131018, end: 20131020
  3. AKINETON//BIPERIDEN HYDROCHLORIDE [Concomitant]
     Dosage: 1 DF, BID
  4. CAMCOLIT [Concomitant]
     Dosage: 1 DF, QD
  5. DEVARON [Concomitant]
     Dosage: 2 DF, DAILY
  6. FERROUS FUMARATE [Concomitant]
     Dosage: 2 DF, DAILY
  7. HALOPERIDOL [Concomitant]
     Dosage: 2.5 MG, DAILY
  8. HALOPERIDOL [Concomitant]
     Dosage: 5 MG, DAILY
  9. LITHIUM CARBONATE [Concomitant]
     Dosage: 1 DF, QD
  10. PANTOPRAZOLE SODIUM SESQUIHYDRATE [Concomitant]
     Dosage: 1 DF, QD
  11. PARACETAMOL [Concomitant]
     Dosage: 4 DF, DAILY

REACTIONS (2)
  - Drug interaction [Recovered/Resolved with Sequelae]
  - Toxic epidermal necrolysis [Recovered/Resolved with Sequelae]
